FAERS Safety Report 10017630 (Version 2)
Quarter: 2014Q1

REPORT INFORMATION
  Report Type: Spontaneous
  Country: US (occurrence: US)
  Receive Date: 20140318
  Receipt Date: 20140318
  Transmission Date: 20141002
  Serious: No
  Sender: FDA-Public Use
  Company Number: US-BRISTOL-MYERS SQUIBB COMPANY-17408873

PATIENT
  Age: 61 Year
  Sex: Female

DRUGS (1)
  1. ERBITUX [Suspect]
     Indication: THROAT CANCER
     Dosage: 3 WEEKLY TREATMENTS

REACTIONS (6)
  - Chapped lips [Unknown]
  - Rash pustular [Unknown]
  - Fatigue [Unknown]
  - Speech disorder [Unknown]
  - Pruritus generalised [Unknown]
  - Pruritus [Unknown]
